FAERS Safety Report 4991191-2 (Version None)
Quarter: 2006Q2

REPORT INFORMATION
  Report Type: 
  Country: None (occurrence: None)
  Receive Date: 20060427
  Receipt Date: 20060407
  Transmission Date: 20061013
  Serious: Yes (Death, Hospitalization)
  Sender: FDA-Public Use
  Company Number: E2B_00007074

PATIENT
  Age: 70 Year
  Sex: Female

DRUGS (12)
  1. METFORMIN [Suspect]
     Indication: DIABETES MELLITUS
     Dosage: 1000,0 MG (500 MG, 2 IN 1 D) ORAL
     Route: 048
  2. COAPROVEL (TABLET) (HYDROCHLOROTHIAZIDE) [Suspect]
     Indication: HYPERTENSION
     Dosage: 300/12,5 MG (1 IN 1 D) ORAL
     Route: 048
  3. LEVAXIN (TABLET) (LEVOTHYROXINE SODIUM) [Concomitant]
  4. METOPROLOL SUCCINATE [Concomitant]
  5. DOXYLIN (DOXYCYCLINE HYCLATE) [Concomitant]
  6. KESTINE (TABLET) (EBASTINE) [Concomitant]
  7. DIURAL (TABLET) (FUROSEMIDE) [Concomitant]
  8. COSYLAN (ORAL SOLUTION) (MENTHOL, ETHYLMORPHINE HYDROCHLORIDE, FRANGUL [Concomitant]
  9. SERETIDE DISKUS 50/250 (FLUTICASONE PROPIONATE, SALMETEROL XINAFOATE) [Concomitant]
  10. LIPITOR [Concomitant]
  11. PARACET (TABLET) (PARACETAMOL) [Concomitant]
  12. VENTOLIN [Concomitant]

REACTIONS (2)
  - LACTIC ACIDOSIS [None]
  - RENAL FAILURE ACUTE [None]
